FAERS Safety Report 5754691-3 (Version None)
Quarter: 2008Q2

REPORT INFORMATION
  Report Type: 
  Country: None (occurrence: None)
  Receive Date: 20080527
  Receipt Date: 20080506
  Transmission Date: 20081010
  Serious: Yes (Death, Hospitalization)
  Sender: FDA-Public Use
  Company Number: 2008AL003556

PATIENT
  Age: 44 Year
  Sex: Female

DRUGS (14)
  1. DIGOXIN [Suspect]
     Indication: CARDIAC DISORDER
     Dosage: DAILY PO
     Route: 048
  2. NAPROXEN [Concomitant]
  3. KLOR-CON [Concomitant]
  4. ASPIRIN [Concomitant]
  5. METOLAZONE [Concomitant]
  6. RAMIPRIL [Concomitant]
  7. SERTRALINE [Concomitant]
  8. AMBIEN [Concomitant]
  9. AMOXICILLIN [Concomitant]
  10. PACERONE [Concomitant]
  11. PROMETHAZINE [Concomitant]
  12. SPIRIVA [Concomitant]
  13. SYMBICORT [Concomitant]
  14. BACLOFEN [Concomitant]

REACTIONS (10)
  - ABDOMINAL PAIN UPPER [None]
  - CEREBROVASCULAR ACCIDENT [None]
  - COMA [None]
  - DIPLOPIA [None]
  - DIZZINESS [None]
  - HEADACHE [None]
  - HYPOTENSION [None]
  - PALPITATIONS [None]
  - TREMOR [None]
  - VOMITING [None]
